FAERS Safety Report 7321170-1 (Version None)
Quarter: 2011Q1

REPORT INFORMATION
  Report Type: 
  Country: None (occurrence: None)
  Receive Date: 20110228
  Receipt Date: 20110223
  Transmission Date: 20110831
  Serious: Yes (Other)
  Sender: FDA-Public Use
  Company Number: US-PFIZER INC-2010006442

PATIENT
  Sex: Female

DRUGS (1)
  1. CHANTIX [Suspect]
     Dosage: UNK
     Dates: start: 20080901

REACTIONS (6)
  - DEPRESSION [None]
  - NIGHTMARE [None]
  - AMNESIA [None]
  - ABNORMAL BEHAVIOUR [None]
  - AGGRESSION [None]
  - SUICIDE ATTEMPT [None]
